FAERS Safety Report 15290466 (Version 1)
Quarter: 2018Q3

REPORT INFORMATION
  Report Type: Report from Study
  Country: US (occurrence: US)
  Receive Date: 20180817
  Receipt Date: 20180817
  Transmission Date: 20181010
  Serious: Yes (Hospitalization)
  Sender: FDA-Public Use
  Company Number: PHHO2018US009306

PATIENT
  Age: 21 Year
  Sex: Female
  Weight: 78.6 kg

DRUGS (4)
  1. DOXORUBICIN [Suspect]
     Active Substance: DOXORUBICIN
     Indication: SYNOVIAL SARCOMA
     Dosage: 37.5 MG/M2, QD (TOTAL DOSE 142 MG)
     Route: 042
     Dates: start: 20170522, end: 20170926
  2. VOTRIENT [Suspect]
     Active Substance: PAZOPANIB HYDROCHLORIDE
     Indication: SYNOVIAL SARCOMA
     Dosage: 600 MG, QD (WEEK 1 TO 12) (TOTAL DOSE 2000 MG)
     Route: 048
     Dates: start: 20170522, end: 20171004
  3. IFOSFAMIDE. [Suspect]
     Active Substance: IFOSFAMIDE
     Indication: SYNOVIAL SARCOMA
     Dosage: 2500 MG/M2, QD (TOTAL DOSE 14100 MG)
     Route: 042
     Dates: start: 20170522, end: 20170927
  4. NEULASTA [Concomitant]
     Active Substance: PEGFILGRASTIM
     Indication: PRODUCT USED FOR UNKNOWN INDICATION
     Dosage: UNK
     Route: 065

REACTIONS (2)
  - Platelet count decreased [Recovering/Resolving]
  - Febrile neutropenia [Recovering/Resolving]

NARRATIVE: CASE EVENT DATE: 20171004
